FAERS Safety Report 4365769-3 (Version None)
Quarter: 2004Q2

REPORT INFORMATION
  Report Type: 
  Country: None (occurrence: None)
  Receive Date: 20040520
  Receipt Date: 20040505
  Transmission Date: 20050107
  Serious: Yes (Hospitalization)
  Sender: FDA-Public Use
  Company Number: ZANA001307

PATIENT
  Sex: Female

DRUGS (1)
  1. ZANAFLEX [Suspect]
     Indication: MUSCLE SPASTICITY
     Dosage: ORAL
     Route: 048

REACTIONS (1)
  - PNEUMONIA ASPIRATION [None]
